FAERS Safety Report 7294466-X (Version None)
Quarter: 2011Q1

REPORT INFORMATION
  Report Type: 
  Country: None (occurrence: None)
  Receive Date: 20110216
  Receipt Date: 20110207
  Transmission Date: 20110831
  Serious: Yes (Hospitalization)
  Sender: FDA-Public Use
  Company Number: US-BIOGENIDEC-2011BI002730

PATIENT
  Age: 35 Year
  Sex: Female

DRUGS (2)
  1. TYSABRI [Suspect]
     Indication: MULTIPLE SCLEROSIS
     Route: 042
     Dates: start: 20100812
  2. COPAXONE [Concomitant]

REACTIONS (7)
  - ANGER [None]
  - HYPOAESTHESIA [None]
  - FATIGUE [None]
  - HEADACHE [None]
  - DRUG DEPENDENCE [None]
  - LETHARGY [None]
  - URINARY TRACT INFECTION [None]
